FAERS Safety Report 17967157 (Version 1)
Quarter: 2020Q2

REPORT INFORMATION
  Report Type: Spontaneous
  Country: US (occurrence: US)
  Receive Date: 20200630
  Receipt Date: 20200630
  Transmission Date: 20200714
  Serious: Yes (Hospitalization)
  Sender: FDA-Public Use
  Company Number: None

PATIENT
  Age: 64 Year
  Sex: Male
  Weight: 96 kg

DRUGS (1)
  1. HALOPERIDOL (HALOPERIDOL 50MG/ML INJ) [Suspect]
     Active Substance: HALOPERIDOL DECANOATE
     Dates: start: 20120320, end: 20200417

REACTIONS (5)
  - Dystonia [None]
  - Hypoaesthesia [None]
  - Dysphagia [None]
  - Muscle rigidity [None]
  - Dizziness [None]

NARRATIVE: CASE EVENT DATE: 20200417
